FAERS Safety Report 6820277-2 (Version None)
Quarter: 2010Q3

REPORT INFORMATION
  Report Type: 
  Country: None (occurrence: None)
  Receive Date: 20100707
  Receipt Date: 20100621
  Transmission Date: 20110219
  Serious: No
  Sender: FDA-Public Use
  Company Number: US-BAYER-201026556NA

PATIENT
  Age: 41 Year
  Sex: Male

DRUGS (1)
  1. MAGNEVIST [Suspect]
     Indication: BACK PAIN
     Dosage: AS USED: 20 ML
     Dates: start: 20100621, end: 20100621

REACTIONS (4)
  - COUGH [None]
  - NAUSEA [None]
  - SENSATION OF FOREIGN BODY [None]
  - SNEEZING [None]
